FAERS Safety Report 9926615 (Version 1)
Quarter: 2014Q1

REPORT INFORMATION
  Report Type: Spontaneous
  Country: US (occurrence: US)
  Receive Date: 20140226
  Receipt Date: 20140226
  Transmission Date: 20141002
  Serious: No
  Sender: FDA-Public Use
  Company Number: US-AMGEN-USASP2013075309

PATIENT
  Age: 63 Year
  Sex: Male

DRUGS (7)
  1. ENBREL [Suspect]
     Indication: PRODUCT USED FOR UNKNOWN INDICATION
     Dosage: 50 MG, QWK
     Route: 058
  2. FOLIC ACID [Concomitant]
     Dosage: UNK
  3. CELEBREX [Concomitant]
     Dosage: 200 MG, UNK
  4. AMITRIPTYLIN [Concomitant]
     Dosage: 10 MG, UNK
  5. TRAMADOL HCL [Concomitant]
     Dosage: 50 MG, UNK
  6. HYDROXYCHLOROQUINE [Concomitant]
     Dosage: 200 MG, UNK
  7. DEPO-MEDROL [Concomitant]
     Dosage: 20 MG/ML, UNK

REACTIONS (2)
  - Arthralgia [Unknown]
  - Drug effect incomplete [Unknown]
